FAERS Safety Report 11331345 (Version 1)
Quarter: 2015Q3

REPORT INFORMATION
  Report Type: Report from Study
  Country: CA (occurrence: CA)
  Receive Date: 20150803
  Receipt Date: 20150803
  Transmission Date: 20151125
  Serious: Yes (Other)
  Sender: FDA-Public Use
  Company Number: CA-BAYER-2014-175455

PATIENT
  Age: 70 Year
  Sex: Female

DRUGS (6)
  1. STIVARGA [Suspect]
     Active Substance: REGORAFENIB
     Indication: COLORECTAL CANCER METASTATIC
     Dosage: 120 MG, QD
     Route: 048
     Dates: end: 20141117
  2. STIVARGA [Suspect]
     Active Substance: REGORAFENIB
     Indication: COLORECTAL CANCER METASTATIC
     Dosage: 80 MG, QD,2 WEEKS ON AND 2 WEEKS OFF
     Route: 048
     Dates: start: 20150327, end: 201506
  3. INDERAL [Concomitant]
     Active Substance: PROPRANOLOL HYDROCHLORIDE
     Dosage: UNK, QD
  4. METHYLPREDNISOLONE [METHYLPREDNISOLONE] [Concomitant]
     Active Substance: METHYLPREDNISOLONE
     Dosage: QD
  5. STIVARGA [Suspect]
     Active Substance: REGORAFENIB
     Indication: COLORECTAL CANCER METASTATIC
     Dosage: 80 MG, QD
     Route: 048
  6. STIVARGA [Suspect]
     Active Substance: REGORAFENIB
     Indication: COLORECTAL CANCER METASTATIC
     Dosage: 120 MG, QD
     Route: 048
     Dates: start: 20141120, end: 20150316

REACTIONS (16)
  - Nail bed tenderness [Not Recovered/Not Resolved]
  - Renal impairment [Not Recovered/Not Resolved]
  - Blister [Recovering/Resolving]
  - Pain in extremity [Recovering/Resolving]
  - Onychomadesis [Not Recovered/Not Resolved]
  - Therapy cessation [None]
  - Back pain [Unknown]
  - Mobility decreased [Not Recovered/Not Resolved]
  - Gait disturbance [Recovering/Resolving]
  - Dyspnoea [Unknown]
  - Fatigue [Unknown]
  - Vision blurred [Recovered/Resolved]
  - Chest discomfort [Not Recovered/Not Resolved]
  - Limb discomfort [Recovering/Resolving]
  - Dysphonia [Not Recovered/Not Resolved]
  - Muscle spasms [None]

NARRATIVE: CASE EVENT DATE: 2014
